FAERS Safety Report 16365515 (Version 1)
Quarter: 2019Q2

REPORT INFORMATION
  Report Type: Spontaneous
  Country: FR (occurrence: FR)
  Receive Date: 20190529
  Receipt Date: 20190529
  Transmission Date: 20190711
  Serious: Yes (Other)
  Sender: FDA-Public Use
  Company Number: FR-ACCORD-129604

PATIENT
  Age: 67 Year
  Sex: Male
  Weight: 85 kg

DRUGS (6)
  1. LACOSAMIDE. [Suspect]
     Active Substance: LACOSAMIDE
     Indication: EPILEPSY
     Route: 048
     Dates: start: 20190129
  2. HOLOXAN [Suspect]
     Active Substance: IFOSFAMIDE
     Indication: PRODUCT USED FOR UNKNOWN INDICATION
     Dosage: J2
     Dates: start: 20190102, end: 20190130
  3. ETOPOSIDE MYLAN [Suspect]
     Active Substance: ETOPOSIDE
     Indication: CENTRAL NERVOUS SYSTEM LYMPHOMA
     Dosage: J1, J2, J3
     Route: 041
     Dates: start: 20190102, end: 20190130
  4. RIXATHON [Suspect]
     Active Substance: RITUXIMAB
     Indication: CENTRAL NERVOUS SYSTEM LYMPHOMA
     Route: 041
     Dates: start: 20190102, end: 20190130
  5. CARBOPLATIN ACCORD [Suspect]
     Active Substance: CARBOPLATIN
     Indication: PRODUCT USED FOR UNKNOWN INDICATION
     Dosage: J2
     Route: 041
     Dates: start: 20190102, end: 20190130
  6. ALIMEMAZINE/ALIMEMAZINE TARTRATE [Suspect]
     Active Substance: TRIMEPRAZINE
     Indication: PRODUCT USED FOR UNKNOWN INDICATION
     Route: 048
     Dates: start: 20190129, end: 20190203

REACTIONS (2)
  - Cholestasis [Recovering/Resolving]
  - Hepatocellular injury [Recovering/Resolving]

NARRATIVE: CASE EVENT DATE: 201902
